FAERS Safety Report 10081042 (Version 1)
Quarter: 2014Q2

REPORT INFORMATION
  Report Type: Spontaneous
  Country: US (occurrence: US)
  Receive Date: 20140416
  Receipt Date: 20140416
  Transmission Date: 20141212
  Serious: No
  Sender: FDA-Public Use
  Company Number: US-PFIZER INC-2014101509

PATIENT
  Sex: 0

DRUGS (1)
  1. NORVASC [Suspect]
     Dosage: 2.5 MG, UNK

REACTIONS (6)
  - Product taste abnormal [Unknown]
  - Tooth disorder [Unknown]
  - Throat tightness [Unknown]
  - Feeling abnormal [Unknown]
  - Dry mouth [Unknown]
  - Back pain [Unknown]
